FAERS Safety Report 16827368 (Version 3)
Quarter: 2019Q4

REPORT INFORMATION
  Report Type: Report from Study
  Country: None (occurrence: FR)
  Receive Date: 20190919
  Receipt Date: 20191113
  Transmission Date: 20200122
  Serious: Yes (Hospitalization, Other)
  Sender: FDA-Public Use
  Company Number: FR-ABBVIE-19K-056-2929049-00

PATIENT
  Sex: Male

DRUGS (2)
  1. DUODOPA [Suspect]
     Active Substance: CARBIDOPA\LEVODOPA
     Indication: PARKINSON^S DISEASE
     Dosage: MD : 3.6 ML FLOW DURING THE DAY: 3.6ML/H FLOW DURING THE NIGHT :1.6 ML
     Route: 050
     Dates: start: 201810
  2. DUODOPA [Suspect]
     Active Substance: CARBIDOPA\LEVODOPA
     Dosage: MD : 3.6 ML FLOW DURING THE DAY: 3.8 ML/H FLOW DURING THE NIGHT : 1.6 ML
     Route: 050

REACTIONS (5)
  - Fall [Not Recovered/Not Resolved]
  - Peritonitis [Not Recovered/Not Resolved]
  - Hypotonia [Not Recovered/Not Resolved]
  - Wrong technique in device usage process [Unknown]
  - Gastrointestinal necrosis [Not Recovered/Not Resolved]

NARRATIVE: CASE EVENT DATE: 201909
